FAERS Safety Report 6301572-2 (Version None)
Quarter: 2009Q3

REPORT INFORMATION
  Report Type: 
  Country: None (occurrence: None)
  Receive Date: 20090807
  Receipt Date: 20090803
  Transmission Date: 20100115
  Serious: Yes (Hospitalization)
  Sender: FDA-Public Use
  Company Number: FR-PFIZER INC-2009249167

PATIENT
  Age: 60 Year

DRUGS (13)
  1. TAHOR [Suspect]
     Indication: CORONARY ARTERY DISEASE
     Dosage: 80 MG, 1X/DAY
     Route: 048
     Dates: start: 20090612, end: 20090627
  2. COVERSYL [Suspect]
     Indication: CORONARY ARTERY DISEASE
     Dosage: 2.5 MG, 1X/DAY
     Route: 048
     Dates: start: 20090612, end: 20090617
  3. KARDEGIC [Suspect]
     Indication: CORONARY ARTERY DISEASE
     Dosage: 75 MG, 1X/DAY
     Route: 048
     Dates: start: 20090617, end: 20090627
  4. PREVISCAN [Concomitant]
     Dosage: 20 MG, UNK
     Dates: start: 20060101
  5. CORDARONE [Concomitant]
     Dosage: 200 MG, UNK
     Dates: start: 20070101
  6. THEOSTAT [Concomitant]
     Dosage: UNK
     Dates: start: 20060101
  7. SYMBICORT [Concomitant]
     Dosage: UNK
     Dates: start: 20060101
  8. SPIRIVA [Concomitant]
     Dosage: 18 UG, UNK
  9. SINGULAIR ^DIECKMANN^ [Concomitant]
  10. LERCAN [Concomitant]
     Dosage: 10 MG, UNK
  11. MEDIATENSYL [Concomitant]
  12. NEXIUM [Concomitant]
  13. VASTAREL [Concomitant]

REACTIONS (1)
  - AGRANULOCYTOSIS [None]
